FAERS Safety Report 9281043 (Version 1)
Quarter: 2013Q2

REPORT INFORMATION
  Report Type: Spontaneous
  Country: IT (occurrence: IT)
  Receive Date: 20130509
  Receipt Date: 20130509
  Transmission Date: 20140414
  Serious: Yes (Other)
  Sender: FDA-Public Use
  Company Number: IT-GLAXOSMITHKLINE-B0890222A

PATIENT
  Age: 13 Year
  Sex: Male

DRUGS (1)
  1. TROBALT [Suspect]
     Indication: PARTIAL SEIZURES
     Dosage: 450MG PER DAY
     Route: 048
     Dates: start: 20130418

REACTIONS (2)
  - Laryngeal oedema [Unknown]
  - Rash pruritic [Unknown]
